FAERS Safety Report 9382849 (Version 2)
Quarter: 2013Q3

REPORT INFORMATION
  Report Type: Spontaneous
  Country: US (occurrence: SV)
  Receive Date: 20130703
  Receipt Date: 20130930
  Transmission Date: 20140515
  Serious: Yes (Hospitalization, Other)
  Sender: FDA-Public Use
  Company Number: US-GILEAD-2013-0078525

PATIENT
  Age: 80 Year
  Sex: Female

DRUGS (3)
  1. LETAIRIS [Suspect]
     Indication: PRODUCT USED FOR UNKNOWN INDICATION
     Dosage: 5 MG, UNK
     Route: 048
     Dates: start: 20120608
  2. BURINEX [Concomitant]
  3. ARTESUL [Concomitant]

REACTIONS (3)
  - Pneumonia [Not Recovered/Not Resolved]
  - Transfusion [Not Recovered/Not Resolved]
  - Swelling [Not Recovered/Not Resolved]
